FAERS Safety Report 4667696-0 (Version None)
Quarter: 2005Q2

REPORT INFORMATION
  Report Type: 
  Country: None (occurrence: None)
  Receive Date: 20050520
  Receipt Date: 20050520
  Transmission Date: 20051028
  Serious: No
  Sender: FDA-Public Use
  Company Number: None

PATIENT
  Sex: Female
  Weight: 68 kg

DRUGS (2)
  1. CISPLATIN [Suspect]
     Dosage: 100MG/M2  ON DAYS 1 AND 22
     Dates: start: 20050503
  2. RADIATION    ARM 2: ACCELERATED FRACTIONATION BY CONCOMITANT BOOST [Suspect]
     Dosage: 72 GY/42 FX FOR 6 WEEKS
     Dates: start: 20050503

REACTIONS (5)
  - BLOOD CREATININE INCREASED [None]
  - HYPONATRAEMIA [None]
  - HYPOTHYROIDISM [None]
  - OTOTOXICITY [None]
  - RENAL FAILURE ACUTE [None]
